FAERS Safety Report 23311413 (Version 2)
Quarter: 2024Q1

REPORT INFORMATION
  Report Type: Spontaneous
  Country: DE (occurrence: DE)
  Receive Date: 20231219
  Receipt Date: 20240209
  Transmission Date: 20240410
  Serious: Yes (Hospitalization)
  Sender: FDA-Public Use
  Company Number: DE-JNJFOC-20230818065

PATIENT
  Age: 78 Year
  Sex: Female
  Weight: 68 kg

DRUGS (36)
  1. DEXAMETHASONE [Suspect]
     Active Substance: DEXAMETHASONE
     Dosage: 4 PER CYCLECYCLE 1
     Route: 048
     Dates: start: 20230417
  2. DEXAMETHASONE [Suspect]
     Active Substance: DEXAMETHASONE
     Dosage: CYCLE 1
     Route: 048
     Dates: start: 20230502
  3. DEXAMETHASONE [Suspect]
     Active Substance: DEXAMETHASONE
     Dosage: CYCLE 1
     Route: 048
     Dates: start: 20230509
  4. DEXAMETHASONE [Suspect]
     Active Substance: DEXAMETHASONE
     Indication: Plasma cell myeloma
     Dosage: CYCLE 2
     Route: 048
     Dates: start: 20230619
  5. DEXAMETHASONE [Suspect]
     Active Substance: DEXAMETHASONE
     Dosage: CYCLE 2
     Route: 048
     Dates: start: 20230605
  6. DEXAMETHASONE [Suspect]
     Active Substance: DEXAMETHASONE
     Dosage: CYCLE 2
     Route: 048
     Dates: start: 20230612
  7. DEXAMETHASONE [Suspect]
     Active Substance: DEXAMETHASONE
     Dosage: CYCLE 2
     Route: 048
     Dates: start: 20230626
  8. DEXAMETHASONE [Suspect]
     Active Substance: DEXAMETHASONE
     Dosage: CYCLE 3
     Route: 048
     Dates: start: 20230703
  9. DEXAMETHASONE [Suspect]
     Active Substance: DEXAMETHASONE
     Dosage: CYCLE 3
     Route: 048
     Dates: start: 20230710
  10. DEXAMETHASONE [Suspect]
     Active Substance: DEXAMETHASONE
     Dosage: CYCLE 3
     Route: 048
     Dates: start: 20230717
  11. DEXAMETHASONE [Suspect]
     Active Substance: DEXAMETHASONE
     Dosage: CYCLE 3
     Route: 048
     Dates: start: 20230725
  12. DARATUMUMAB [Suspect]
     Active Substance: DARATUMUMAB
     Dosage: CYCLE 1
     Route: 058
     Dates: start: 20230417
  13. DARATUMUMAB [Suspect]
     Active Substance: DARATUMUMAB
     Dosage: CYCLE 1
     Route: 058
     Dates: start: 20230502
  14. DARATUMUMAB [Suspect]
     Active Substance: DARATUMUMAB
     Dosage: CYCLE 1
     Route: 058
     Dates: start: 20230508
  15. DARATUMUMAB [Suspect]
     Active Substance: DARATUMUMAB
     Dosage: CYCLE 2
     Route: 058
     Dates: start: 20230605
  16. DARATUMUMAB [Suspect]
     Active Substance: DARATUMUMAB
     Dosage: CYCLE 2
     Route: 058
     Dates: start: 20230615
  17. DARATUMUMAB [Suspect]
     Active Substance: DARATUMUMAB
     Dosage: CYCLE 2
     Route: 058
     Dates: start: 20230622
  18. DARATUMUMAB [Suspect]
     Active Substance: DARATUMUMAB
     Dosage: CYCLE 2
     Route: 058
     Dates: start: 20230629
  19. DARATUMUMAB [Suspect]
     Active Substance: DARATUMUMAB
     Dosage: CYCLE 3
     Route: 058
     Dates: start: 20230703
  20. DARATUMUMAB [Suspect]
     Active Substance: DARATUMUMAB
     Dosage: CYCLE 3
     Route: 058
     Dates: start: 20230717
  21. DARATUMUMAB [Suspect]
     Active Substance: DARATUMUMAB
     Indication: Plasma cell myeloma
     Dosage: CYCLE 4
     Route: 058
     Dates: start: 20230807
  22. LENALIDOMIDE [Suspect]
     Active Substance: LENALIDOMIDE
     Dosage: 21 PER CYCLECYCLE 1
     Route: 048
     Dates: start: 20230417, end: 20230423
  23. LENALIDOMIDE [Suspect]
     Active Substance: LENALIDOMIDE
     Dosage: CYCLE 2
     Route: 048
     Dates: start: 20230605, end: 20230625
  24. LENALIDOMIDE [Suspect]
     Active Substance: LENALIDOMIDE
     Indication: Plasma cell myeloma
     Dosage: CYCLE 3
     Route: 048
     Dates: start: 20230703, end: 20230720
  25. LENALIDOMIDE [Suspect]
     Active Substance: LENALIDOMIDE
     Dosage: CYCLE 4
     Route: 048
     Dates: start: 20230808, end: 20230812
  26. LENALIDOMIDE [Suspect]
     Active Substance: LENALIDOMIDE
     Dosage: CYCLE 4
     Route: 048
     Dates: start: 20230821, end: 20230905
  27. LENALIDOMIDE [Suspect]
     Active Substance: LENALIDOMIDE
     Dosage: CYCLE 1
     Route: 048
     Dates: start: 20230502, end: 20230510
  28. LENALIDOMIDE [Suspect]
     Active Substance: LENALIDOMIDE
     Dosage: UNK
     Route: 065
  29. ASPIRIN [Concomitant]
     Active Substance: ASPIRIN
     Indication: Hypothyroidism
     Dosage: 100.000MG QD
     Route: 048
     Dates: start: 20230511
  30. ATORVASTATIN [Concomitant]
     Active Substance: ATORVASTATIN
     Indication: Hypertension
     Dosage: 20.000MG QD
     Route: 048
  31. BIMATOPROST [Concomitant]
     Active Substance: BIMATOPROST
     Indication: Glaucoma
     Route: 061
  32. CANDESARTAN [Concomitant]
     Active Substance: CANDESARTAN
     Indication: Hypertension
     Dosage: 8.000MG QD
     Route: 048
  33. CHOLECALCIFEROL [Concomitant]
     Active Substance: CHOLECALCIFEROL
     Indication: Prophylaxis
     Dosage: 1000
     Route: 048
  34. DUSPATAL DUPHAR [Concomitant]
     Indication: Irritable bowel syndrome
     Dosage: 135.000MG QD
     Route: 048
  35. LEVOTHYROXINE [Concomitant]
     Active Substance: LEVOTHYROXINE\LEVOTHYROXINE SODIUM
     Indication: Hypothyroidism
     Dosage: 50.000UG QD
     Route: 048
  36. PANTOZAL [Concomitant]
     Indication: Colitis ischaemic
     Dosage: 40.000MG QD
     Route: 048

REACTIONS (1)
  - Urinary tract infection [Recovered/Resolved]

NARRATIVE: CASE EVENT DATE: 20230720
